FAERS Safety Report 5788026-7 (Version None)
Quarter: 2008Q2

REPORT INFORMATION
  Report Type: 
  Country: None (occurrence: None)
  Receive Date: 20080625
  Receipt Date: 20080613
  Transmission Date: 20081010
  Serious: Yes (Hospitalization)
  Sender: FDA-Public Use
  Company Number: DE-ELI_LILLY_AND_COMPANY-DE200806003252

PATIENT
  Age: 56 Year
  Sex: Female
  Weight: 67 kg

DRUGS (4)
  1. CYMBALTA [Suspect]
     Indication: DEPRESSION
     Dosage: 120 MG, DAILY (1/D)
     Route: 048
     Dates: start: 20070503
  2. ZOLPIDEM TARTRATE [Concomitant]
     Dosage: 10 MG, DAILY (1/D)
     Route: 048
     Dates: start: 20061127
  3. LORAZEPAM [Concomitant]
     Dosage: 1 MG, DAILY (1/D)
     Route: 048
     Dates: start: 20070419, end: 20070524
  4. LYRICA [Concomitant]
     Dosage: 225 MG, DAILY (1/D)
     Route: 048
     Dates: start: 20070505

REACTIONS (3)
  - RECTAL HAEMORRHAGE [None]
  - REITER'S SYNDROME [None]
  - VENOUS STASIS [None]
